FAERS Safety Report 21947309 (Version 2)
Quarter: 2023Q1

REPORT INFORMATION
  Report Type: Spontaneous
  Country: JP (occurrence: JP)
  Receive Date: 20230202
  Receipt Date: 20230314
  Transmission Date: 20230418
  Serious: Yes (Death, Life-Threatening, Hospitalization, Other)
  Sender: FDA-Public Use
  Company Number: JP-JAZZ-2023-JP-002533

PATIENT
  Age: 48 Year
  Sex: Male

DRUGS (2)
  1. DEFITELIO [Suspect]
     Active Substance: DEFIBROTIDE SODIUM
     Indication: Venoocclusive liver disease
     Dosage: UNK
     Route: 042
     Dates: start: 20221223, end: 20230123
  2. THROMBOMODULIN ALFA [Concomitant]
     Active Substance: THROMBOMODULIN ALFA
     Indication: Product used for unknown indication

REACTIONS (4)
  - Engraft failure [Fatal]
  - Septic shock [Fatal]
  - Hypotension [Not Recovered/Not Resolved]
  - Blood bilirubin increased [Not Recovered/Not Resolved]
